FAERS Safety Report 25833126 (Version 1)
Quarter: 2025Q3

REPORT INFORMATION
  Report Type: Spontaneous
  Country: US (occurrence: US)
  Receive Date: 20250922
  Receipt Date: 20250922
  Transmission Date: 20251020
  Serious: Yes (Hospitalization)
  Sender: KINIKSA PHARMACEUTICALS
  Company Number: US-KINIKSA PHARMACEUTICALS LTD.-2025KPU002548

PATIENT

DRUGS (1)
  1. ARCALYST [Suspect]
     Active Substance: RILONACEPT

REACTIONS (1)
  - Cholangitis [Not Recovered/Not Resolved]
